FAERS Safety Report 15390347 (Version 3)
Quarter: 2020Q4

REPORT INFORMATION
  Report Type: Report from Study
  Country: None (occurrence: CA)
  Receive Date: 20180917
  Receipt Date: 20201108
  Transmission Date: 20210113
  Serious: Yes (Hospitalization)
  Sender: FDA-Public Use
  Company Number: CA-ABBVIE-18K-028-2349488-00

PATIENT
  Sex: Female

DRUGS (4)
  1. HUMIRA [Suspect]
     Active Substance: ADALIMUMAB
     Route: 058
     Dates: start: 201904
  2. HUMIRA [Suspect]
     Active Substance: ADALIMUMAB
     Route: 058
  3. HUMIRA [Suspect]
     Active Substance: ADALIMUMAB
     Indication: COLITIS ULCERATIVE
     Route: 058
     Dates: start: 20150430, end: 2018
  4. HUMIRA [Suspect]
     Active Substance: ADALIMUMAB
     Route: 058
     Dates: start: 20180926, end: 2018

REACTIONS (16)
  - Multiple pregnancy [Unknown]
  - Gastrointestinal scarring [Recovered/Resolved]
  - Rectal haemorrhage [Not Recovered/Not Resolved]
  - Drug level above therapeutic [Unknown]
  - Haemorrhoids [Unknown]
  - Gastrointestinal scarring [Not Recovered/Not Resolved]
  - Diarrhoea [Unknown]
  - Diarrhoea haemorrhagic [Not Recovered/Not Resolved]
  - Colitis ulcerative [Recovered/Resolved]
  - Arthralgia [Unknown]
  - Hospitalisation [Unknown]
  - Maternal exposure during pregnancy [Unknown]
  - Diarrhoea [Recovering/Resolving]
  - Live birth [Unknown]
  - Joint stiffness [Unknown]
  - Therapeutic response shortened [Not Recovered/Not Resolved]

NARRATIVE: CASE EVENT DATE: 2018
